FAERS Safety Report 15991903 (Version 1)
Quarter: 2019Q1

REPORT INFORMATION
  Report Type: Spontaneous
  Country: US (occurrence: US)
  Receive Date: 20190221
  Receipt Date: 20190221
  Transmission Date: 20190418
  Serious: Yes (Other)
  Sender: FDA-Public Use
  Company Number: US-TEVA-2019-US-1015792

PATIENT

DRUGS (1)
  1. PROPRANOLOL HCL TABLET [Suspect]
     Active Substance: PROPRANOLOL HYDROCHLORIDE

REACTIONS (16)
  - Loss of dreaming [Unknown]
  - Muscle twitching [Unknown]
  - Insomnia [Unknown]
  - Dyspepsia [Unknown]
  - Chest pain [Unknown]
  - Cardiac flutter [Unknown]
  - Palpitations [Unknown]
  - Tremor [Unknown]
  - Feeling abnormal [Unknown]
  - Arthralgia [Unknown]
  - Musculoskeletal chest pain [Unknown]
  - Dyspnoea [Unknown]
  - Libido decreased [Unknown]
  - Nausea [Unknown]
  - Coordination abnormal [Unknown]
  - Burning sensation [Unknown]
